FAERS Safety Report 7654108-8 (Version None)
Quarter: 2011Q3

REPORT INFORMATION
  Report Type: 
  Country: None (occurrence: None)
  Receive Date: 20110803
  Receipt Date: 20110725
  Transmission Date: 20111222
  Serious: No
  Sender: FDA-Public Use
  Company Number: US-ASTRAZENECA-2004UW09477

PATIENT
  Age: 80 Year
  Sex: Female
  Weight: 81.6 kg

DRUGS (6)
  1. LOPRESSOR [Concomitant]
  2. CRESTOR [Suspect]
     Route: 048
  3. CRESTOR [Suspect]
     Indication: HYPERCHOLESTEROLAEMIA
     Route: 048
     Dates: start: 20040501, end: 20040505
  4. LEVOTHROID [Concomitant]
  5. ASPIRIN [Concomitant]
  6. CARDIZEM [Concomitant]

REACTIONS (2)
  - HEADACHE [None]
  - ARTHRALGIA [None]
